FAERS Safety Report 25598976 (Version 1)
Quarter: 2025Q3

REPORT INFORMATION
  Report Type: Spontaneous
  Country: GB (occurrence: GB)
  Receive Date: 20250724
  Receipt Date: 20250724
  Transmission Date: 20251020
  Serious: Yes (Other)
  Sender: ASCEND THERAPEUTICS US, LLC
  Company Number: GB-Ascend Therapeutics US, LLC-2181095

PATIENT
  Age: 44 Year
  Sex: Female

DRUGS (18)
  1. ESTROGEL [Suspect]
     Active Substance: ESTRADIOL
     Indication: Product used for unknown indication
     Dates: start: 20250114
  2. PROGESTERONE [Suspect]
     Active Substance: PROGESTERONE
     Dates: start: 20230201
  3. CROTAMITON [Suspect]
     Active Substance: CROTAMITON
     Dates: start: 20250106
  4. PROCHLORPERAZINE MALEATE [Suspect]
     Active Substance: PROCHLORPERAZINE MALEATE
     Dates: start: 20250529
  5. DOXYCYCLINE HYCLATE [Suspect]
     Active Substance: DOXYCYCLINE HYCLATE
     Dates: start: 20250529
  6. TRIMETHOPRIM [Suspect]
     Active Substance: TRIMETHOPRIM
     Dates: start: 20250429
  7. DIHYDROCODEINE [Suspect]
     Active Substance: DIHYDROCODEINE
     Dates: start: 20250227
  8. DIHYDROCODEINE BITARTRATE [Suspect]
     Active Substance: DIHYDROCODEINE BITARTRATE
     Dates: start: 20250219
  9. CELECOXIB [Suspect]
     Active Substance: CELECOXIB
     Dates: start: 20250101
  10. FEXOFENADINE HYDROCHLORIDE [Suspect]
     Active Substance: FEXOFENADINE HYDROCHLORIDE
     Dates: start: 20241218
  11. AMITRIPTYLINE HYDROCHLORIDE [Suspect]
     Active Substance: AMITRIPTYLINE HYDROCHLORIDE
     Dates: start: 20250613
  12. PRAMIPEXOLE DIHYDROCHLORIDE [Suspect]
     Active Substance: PRAMIPEXOLE DIHYDROCHLORIDE
     Dates: start: 20240510
  13. MODAFINIL [Suspect]
     Active Substance: MODAFINIL
     Dates: start: 20240510
  14. PREGABALIN [Suspect]
     Active Substance: PREGABALIN
     Dates: start: 20240923
  15. SENNA [Suspect]
     Active Substance: SENNOSIDES
     Dates: start: 20220823
  16. ACYCLOVIR [Suspect]
     Active Substance: ACYCLOVIR
     Dates: start: 20130628
  17. CLADRIBINE [Suspect]
     Active Substance: CLADRIBINE
     Dates: start: 202503, end: 202504
  18. ESTRADIOL [Suspect]
     Active Substance: ESTRADIOL
     Dates: start: 20250114

REACTIONS (3)
  - Skin burning sensation [Not Recovered/Not Resolved]
  - Pruritus [Not Recovered/Not Resolved]
  - Urticaria [Not Recovered/Not Resolved]

NARRATIVE: CASE EVENT DATE: 20250301
